FAERS Safety Report 6938218-6 (Version None)
Quarter: 2010Q3

REPORT INFORMATION
  Report Type: 
  Country: None (occurrence: None)
  Receive Date: 20100824
  Receipt Date: 20100811
  Transmission Date: 20110219
  Serious: No
  Sender: FDA-Public Use
  Company Number: GB-ELI_LILLY_AND_COMPANY-GB201007000503

PATIENT
  Sex: Female
  Weight: 107 kg

DRUGS (4)
  1. BYETTA [Suspect]
     Indication: DIABETES MELLITUS
     Dosage: 10 UG, UNKNOWN
     Route: 058
  2. BYETTA [Suspect]
     Dosage: 5 UG, UNKNOWN
     Route: 058
  3. SIMVASTATIN [Concomitant]
     Indication: LIPIDS INCREASED
     Dosage: 40 MG, UNKNOWN
     Route: 048
     Dates: start: 20100107, end: 20100207
  4. METFORMIN HCL [Concomitant]
     Indication: DIABETES MELLITUS
     Dosage: 2 G, UNKNOWN
     Route: 048
     Dates: start: 20090417

REACTIONS (3)
  - FATIGUE [None]
  - PAIN IN EXTREMITY [None]
  - RASH MACULAR [None]
